FAERS Safety Report 11509152 (Version 2)
Quarter: 2015Q3

REPORT INFORMATION
  Report Type: Spontaneous
  Country: US (occurrence: US)
  Receive Date: 20150915
  Receipt Date: 20150917
  Transmission Date: 20151125
  Serious: Yes (Hospitalization, Other)
  Sender: FDA-Public Use
  Company Number: US-PFIZER INC-2015303523

PATIENT
  Age: 59 Year
  Sex: Male
  Weight: 61 kg

DRUGS (8)
  1. GLIPIZIDE. [Concomitant]
     Active Substance: GLIPIZIDE
     Indication: DIABETES MELLITUS
     Dosage: 5 MG, 2X/DAY (HALVED)
     Route: 048
  2. NEXIUM [Concomitant]
     Active Substance: ESOMEPRAZOLE MAGNESIUM
     Dosage: 40 MG, 1X/DAY
     Route: 048
  3. SODIUM CHLD [Concomitant]
     Indication: NASAL DRYNESS
     Dosage: UNK
  4. TRAZODONE [Concomitant]
     Active Substance: TRAZODONE HYDROCHLORIDE
     Indication: PAIN
  5. TRAZODONE [Concomitant]
     Active Substance: TRAZODONE HYDROCHLORIDE
     Indication: SLEEP DISORDER
     Dosage: 50 MG, 1X/DAY (AT BEDTIME)
     Route: 048
  6. RAPAMUNE [Suspect]
     Active Substance: SIROLIMUS
     Indication: LIVER TRANSPLANT REJECTION
     Dosage: 1 MG, (3 TIMES A WEEK ON MONDAY, WEDNESDAY, FRIDAY)
     Route: 048
     Dates: start: 2005
  7. XIFAXAN [Concomitant]
     Active Substance: RIFAXIMIN
     Indication: AMMONIA
     Dosage: 500 MG, 2X/DAY
     Route: 048
  8. CALCIUM CITRATE WITH VITAMIN D [Concomitant]
     Active Substance: CALCIUM CITRATE\VITAMIN D
     Indication: SUPPLEMENTATION THERAPY
     Dosage: 500 IU, 1X/DAY
     Route: 048

REACTIONS (5)
  - Hip fracture [Recovered/Resolved with Sequelae]
  - Diabetes mellitus [Not Recovered/Not Resolved]
  - Product use issue [Unknown]
  - Pain [Not Recovered/Not Resolved]
  - Gait disturbance [Not Recovered/Not Resolved]

NARRATIVE: CASE EVENT DATE: 2015
